FAERS Safety Report 12991798 (Version 1)
Quarter: 2016Q4

REPORT INFORMATION
  Report Type: Spontaneous
  Country: FR (occurrence: FR)
  Receive Date: 20161201
  Receipt Date: 20161201
  Transmission Date: 20170207
  Serious: Yes (Hospitalization)
  Sender: FDA-Public Use
  Company Number: FR-OTSUKA-2016_027866

PATIENT
  Age: 23 Year
  Sex: Male

DRUGS (2)
  1. ALCOHOL. [Interacting]
     Active Substance: ALCOHOL
     Indication: PRODUCT USED FOR UNKNOWN INDICATION
     Dosage: UNK
     Route: 065
  2. ABILIFY MAINTENA [Suspect]
     Active Substance: ARIPIPRAZOLE
     Indication: BIPOLAR DISORDER
     Dosage: 400 MG, UNK
     Route: 065
     Dates: start: 201512

REACTIONS (8)
  - Vomiting [Unknown]
  - Off label use [Unknown]
  - Road traffic accident [Recovered/Resolved]
  - Concussion [Unknown]
  - Drug interaction [Unknown]
  - Blood alcohol increased [Unknown]
  - Head injury [Unknown]
  - Nausea [Unknown]

NARRATIVE: CASE EVENT DATE: 201512
